FAERS Safety Report 23986241 (Version 1)
Quarter: 2024Q2

REPORT INFORMATION
  Report Type: Spontaneous
  Country: US (occurrence: US)
  Receive Date: 20240618
  Receipt Date: 20240618
  Transmission Date: 20240716
  Serious: Yes (Hospitalization, Other)
  Sender: FDA-Public Use
  Company Number: US-AMGEN-USASP2024116620

PATIENT

DRUGS (1)
  1. PREDNISONE [Suspect]
     Active Substance: PREDNISONE
     Indication: Exposure during pregnancy
     Dosage: UNK
     Route: 065

REACTIONS (8)
  - Neonatal respiratory distress [Unknown]
  - Neonatal cholestasis [Unknown]
  - Necrotising enterocolitis neonatal [Unknown]
  - Foetal cardiac disorder [Unknown]
  - Premature baby [Unknown]
  - Lymphopenia [Recovering/Resolving]
  - Anaemia [Recovering/Resolving]
  - Foetal exposure during pregnancy [Unknown]
